FAERS Safety Report 8707407 (Version 3)
Quarter: 2012Q4

REPORT INFORMATION
  Report Type: 
  Country: US (occurrence: US)
  Receive Date: 20120803
  Receipt Date: 20120912
  Transmission Date: 20130627
  Serious: No
  Sender: FDA-Public Use
  Company Number: US-ASTRAZENECA-2012SE53176

PATIENT
  Age: 54 Year
  Sex: Female

DRUGS (2)
  1. NEXIUM [Suspect]
     Route: 048
  2. NEXIUM [Suspect]
     Dosage: TAKING NEXIUM EVERY TWO DAYS INSTEAD OF EVERY DAY
     Route: 048

REACTIONS (12)
  - Diverticulitis [Unknown]
  - Gastrooesophageal reflux disease [Unknown]
  - Femoral hernia [Unknown]
  - Bone pain [Unknown]
  - Constipation [Unknown]
  - Dizziness [Unknown]
  - Abdominal pain upper [Unknown]
  - Malaise [Unknown]
  - Malaise [Unknown]
  - Intentional drug misuse [Unknown]
  - Drug dose omission [Unknown]
  - Off label use [Unknown]
